FAERS Safety Report 6706413-7 (Version None)
Quarter: 2010Q2

REPORT INFORMATION
  Report Type: 
  Country: None (occurrence: None)
  Receive Date: 20100503
  Receipt Date: 20100420
  Transmission Date: 20101027
  Serious: Yes (Hospitalization)
  Sender: FDA-Public Use
  Company Number: JP-AMGEN-US409403

PATIENT
  Sex: Female
  Weight: 57 kg

DRUGS (6)
  1. ENBREL [Suspect]
     Indication: RHEUMATOID ARTHRITIS
     Dosage: INJECTION; DOSE AND FREQUENCY UNKNOWN
     Route: 058
     Dates: start: 20030501
  2. ENBREL [Suspect]
     Dosage: INJECTION; 25 MG 2 X PER 1 WEEK
     Route: 058
     Dates: start: 20050801
  3. ENBREL [Suspect]
     Dosage: INJECTION; 25 MG 1 X PER 1 WEEK
     Route: 058
     Dates: start: 20080801
  4. ENBREL [Suspect]
     Dosage: SOLUTION FOR INJECTION; 25 MG 1 X PER 1 WEEK
     Route: 058
  5. VONAFEC [Concomitant]
     Dosage: NOT PROVIDED
     Route: 054
  6. BUFFERIN [Concomitant]
     Route: 048

REACTIONS (3)
  - CELLULITIS STAPHYLOCOCCAL [None]
  - CONDITION AGGRAVATED [None]
  - RHEUMATOID ARTHRITIS [None]
